FAERS Safety Report 9014737 (Version 2)
Quarter: 2013Q1

REPORT INFORMATION
  Report Type: Spontaneous
  Country: US (occurrence: US)
  Receive Date: 20130115
  Receipt Date: 20130201
  Transmission Date: 20140127
  Serious: Yes (Other)
  Sender: FDA-Public Use
  Company Number: US-PFIZER INC-2013014657

PATIENT
  Age: 42 Year
  Sex: Male

DRUGS (1)
  1. DILANTIN-125 [Suspect]
     Indication: CONVULSION
     Dosage: 400 MG, 1X/DAY (QHS)
     Route: 048
     Dates: start: 201106

REACTIONS (2)
  - Intentional drug misuse [Unknown]
  - Convulsion [Not Recovered/Not Resolved]
